FAERS Safety Report 25130885 (Version 2)
Quarter: 2025Q2

REPORT INFORMATION
  Report Type: Spontaneous
  Country: IT (occurrence: IT)
  Receive Date: 20250327
  Receipt Date: 20250404
  Transmission Date: 20250717
  Serious: Yes (Other)
  Sender: EMD SERONO INC
  Company Number: IT-Merck Healthcare KGaA-2025013717

PATIENT
  Sex: Female

DRUGS (1)
  1. CHORIOGONADOTROPIN ALFA [Suspect]
     Active Substance: CHORIOGONADOTROPIN ALFA
     Indication: Assisted reproductive technology

REACTIONS (6)
  - Haemorrhagic ovarian cyst [Recovered/Resolved]
  - Ovarian cyst [Unknown]
  - Failed artificial insemination [Not Recovered/Not Resolved]
  - Intermenstrual bleeding [Unknown]
  - Menstruation delayed [Recovered/Resolved]
  - Abdominal pain lower [Unknown]

NARRATIVE: CASE EVENT DATE: 20241223
